FAERS Safety Report 7684432-4 (Version None)
Quarter: 2011Q3

REPORT INFORMATION
  Report Type: 
  Country: None (occurrence: None)
  Receive Date: 20110816
  Receipt Date: 20110808
  Transmission Date: 20111222
  Serious: No
  Sender: FDA-Public Use
  Company Number: US-BIOGENIDEC-2010BI031969

PATIENT
  Age: 51 Year
  Sex: Female

DRUGS (5)
  1. OXYCODONE HCL AND ACETAMINOPHEN [Concomitant]
     Indication: PAIN IN EXTREMITY
     Dates: start: 20100101
  2. OXYCODONE HCL AND ACETAMINOPHEN [Concomitant]
     Dates: start: 20100101
  3. FUROSEMIDE [Concomitant]
     Indication: OEDEMA
     Route: 048
     Dates: start: 20100101
  4. TYSABRI [Suspect]
     Indication: MULTIPLE SCLEROSIS
     Route: 042
     Dates: start: 20100819, end: 20101116
  5. BACLOFEN [Concomitant]
     Indication: MUSCLE SPASMS
     Dates: start: 20090624

REACTIONS (13)
  - LIVER INJURY [None]
  - PARAESTHESIA [None]
  - AMNESIA [None]
  - BURNING SENSATION [None]
  - FEELING HOT [None]
  - PAIN IN EXTREMITY [None]
  - PAIN [None]
  - HYPOAESTHESIA [None]
  - BLOOD GLUCOSE DECREASED [None]
  - MYALGIA [None]
  - BALANCE DISORDER [None]
  - MUSCLE SPASMS [None]
  - LIVER DISORDER [None]
